FAERS Safety Report 16135729 (Version 1)
Quarter: 2019Q1

REPORT INFORMATION
  Report Type: Report from Study
  Country: BR (occurrence: BR)
  Receive Date: 20190329
  Receipt Date: 20190329
  Transmission Date: 20190418
  Serious: Yes (Life-Threatening, Other)
  Sender: FDA-Public Use
  Company Number: PHHY2019BR068171

PATIENT
  Age: 81 Year
  Sex: Male

DRUGS (1)
  1. FORASEQ [Suspect]
     Active Substance: BUDESONIDE\FORMOTEROL FUMARATE
     Indication: LUNG DISORDER
     Dosage: (FORMOTEROL FUMARATE 400MCG, BUDESONIDE 12MCG) (8 YEARS AGO)
     Route: 065

REACTIONS (16)
  - Dyspnoea [Unknown]
  - Mobility decreased [Unknown]
  - Back pain [Not Recovered/Not Resolved]
  - Product availability issue [Unknown]
  - Fall [Unknown]
  - Dysstasia [Unknown]
  - Muscular weakness [Unknown]
  - Haemorrhage [Unknown]
  - Intervertebral disc protrusion [Unknown]
  - Musculoskeletal discomfort [Unknown]
  - Malaise [Unknown]
  - Drug dependence [Unknown]
  - Nephrolithiasis [Recovered/Resolved]
  - Spinal disorder [Not Recovered/Not Resolved]
  - Pain in extremity [Unknown]
  - Product use in unapproved indication [Unknown]

NARRATIVE: CASE EVENT DATE: 201801
